FAERS Safety Report 20118824 (Version 1)
Quarter: 2021Q4

REPORT INFORMATION
  Report Type: Spontaneous
  Country: FR (occurrence: FR)
  Receive Date: 20211126
  Receipt Date: 20211126
  Transmission Date: 20220304
  Serious: Yes (Congenital Anomaly, Other)
  Sender: FDA-Public Use
  Company Number: FR-ABBVIE-21K-056-4175850-00

PATIENT
  Sex: Male

DRUGS (3)
  1. VALPROATE SODIUM [Suspect]
     Active Substance: VALPROATE SODIUM
     Indication: Maternal exposure timing unspecified
     Route: 064
  2. BROMAZEPAM [Suspect]
     Active Substance: BROMAZEPAM
     Indication: Maternal exposure timing unspecified
     Route: 064
  3. FOLIC ACID [Suspect]
     Active Substance: FOLIC ACID
     Indication: Maternal exposure timing unspecified
     Route: 064

REACTIONS (21)
  - Inguinal hernia [Unknown]
  - Spine malformation [Unknown]
  - Limb malformation [Unknown]
  - Dysmorphism [Unknown]
  - Bladder disorder [Unknown]
  - Heart disease congenital [Unknown]
  - Communication disorder [Unknown]
  - Speech disorder developmental [Unknown]
  - Behaviour disorder [Unknown]
  - Cognitive disorder [Unknown]
  - Psychomotor retardation [Unknown]
  - Autism spectrum disorder [Unknown]
  - Overweight [Unknown]
  - Intellectual disability [Unknown]
  - Scoliosis [Unknown]
  - Foetal anticonvulsant syndrome [Unknown]
  - Ear, nose and throat disorder [Unknown]
  - Dyspepsia [Unknown]
  - Respiratory disorder [Unknown]
  - Anxiety [Unknown]
  - Foetal exposure during pregnancy [Unknown]

NARRATIVE: CASE EVENT DATE: 19990116
